FAERS Safety Report 21015427 (Version 1)
Quarter: 2022Q2

REPORT INFORMATION
  Report Type: Spontaneous
  Country: US (occurrence: US)
  Receive Date: 20220628
  Receipt Date: 20220628
  Transmission Date: 20220720
  Serious: No
  Sender: FDA-Public Use
  Company Number: US-BAUSCH-BL-2022-015963

PATIENT
  Age: 73 Year
  Sex: Female

DRUGS (2)
  1. ALAWAY [Suspect]
     Active Substance: KETOTIFEN FUMARATE
     Indication: Eye allergy
     Route: 047
     Dates: end: 20220620
  2. THERATEARS [Concomitant]
     Active Substance: CARBOXYMETHYLCELLULOSE SODIUM
     Indication: Product used for unknown indication
     Dosage: ALAWAY PRESERVATIVE FREE OPHTHALMIC SOLUTION
     Route: 065

REACTIONS (1)
  - Instillation site pain [Recovering/Resolving]

NARRATIVE: CASE EVENT DATE: 20220620
